FAERS Safety Report 25953843 (Version 1)
Quarter: 2025Q4

REPORT INFORMATION
  Report Type: Spontaneous
  Country: EU (occurrence: EU)
  Receive Date: 20251023
  Receipt Date: 20251023
  Transmission Date: 20260118
  Serious: Yes (Other)
  Sender: MERZ
  Company Number: EU-ACORDA THERAPEUTICS IRELAND LIMITED-ACO_178114_2024

PATIENT

DRUGS (19)
  1. INBRIJA [Suspect]
     Active Substance: LEVODOPA
     Indication: Parkinson^s disease
     Dosage: 33 MILLIGRAM, 5X/QD
     Dates: start: 20240628
  2. INBRIJA [Suspect]
     Active Substance: LEVODOPA
     Indication: On and off phenomenon
     Dosage: 33 MILLIGRAM, 5X/QD
     Dates: start: 20240628
  3. INBRIJA [Suspect]
     Active Substance: LEVODOPA
     Dosage: 33 MILLIGRAM, QD (AT 7 AM)
     Dates: start: 20240628
  4. INBRIJA [Suspect]
     Active Substance: LEVODOPA
     Dosage: 33 MILLIGRAM, QD (AT 7 AM)
     Dates: start: 20240628
  5. INBRIJA [Suspect]
     Active Substance: LEVODOPA
     Dosage: 33 MILLIGRAM, QD (AT 7 AM)
     Dates: start: 20240628
  6. ESCITALOPRAM [Suspect]
     Active Substance: ESCITALOPRAM OXALATE
     Indication: Depression
     Dosage: 10 MILLIGRAM, QD (WHOLE TABLET IN THE MORNING)
     Route: 065
     Dates: start: 20241124
  7. ESCITALOPRAM [Suspect]
     Active Substance: ESCITALOPRAM OXALATE
     Dosage: 10 MILLIGRAM, QD (HALF A TABLET IN THE MORNING)
     Route: 065
     Dates: start: 20241115
  8. ESCITALOPRAM [Suspect]
     Active Substance: ESCITALOPRAM OXALATE
     Dosage: 10 MILLIGRAM, 0-0-1
     Route: 065
     Dates: start: 20250401
  9. XADAGO [Suspect]
     Active Substance: SAFINAMIDE MESYLATE
     Indication: Product used for unknown indication
     Dosage: 100 MILLIGRAM, QD (AT 7AM)
     Route: 065
  10. CARBIDOPA\LEVODOPA [Concomitant]
     Active Substance: CARBIDOPA\LEVODOPA
     Indication: Product used for unknown indication
     Dosage: 25MG/100MG (1/2 TABLET AT 7H-10H-13H-18H, 1 TABLET AT 19H)
     Route: 065
  11. SINEMET [Concomitant]
     Active Substance: CARBIDOPA\LEVODOPA
     Indication: Product used for unknown indication
     Dosage: UNK, QD
     Route: 065
  12. DEPRAX [Concomitant]
     Indication: Product used for unknown indication
     Dosage: 50 MILLIGRAM, QD
     Route: 065
  13. ONGENTYS [Concomitant]
     Active Substance: OPICAPONE
     Indication: Product used for unknown indication
     Dosage: UNK, QD
     Route: 065
  14. ACETAMINOPHEN [Concomitant]
     Active Substance: ACETAMINOPHEN
     Indication: Product used for unknown indication
     Dosage: 1 GRAM, QD
     Route: 065
  15. ATORVASTATIN [Concomitant]
     Active Substance: ATORVASTATIN
     Indication: Product used for unknown indication
     Dosage: UNK
     Route: 065
  16. AMANTADINA [AMANTADINE HYDROCHLORIDE] [Concomitant]
     Indication: Product used for unknown indication
     Dosage: 100 MILLIGRAM, 1-0-1
     Dates: start: 20250401
  17. PRAMIPEXOLE DIHYDROCHLORIDE [Concomitant]
     Active Substance: PRAMIPEXOLE DIHYDROCHLORIDE
     Indication: Product used for unknown indication
     Dosage: 0.52 MILLIGRAM, 1-0-0
     Route: 065
     Dates: start: 20250401
  18. CARBIDOPA\LEVODOPA [Concomitant]
     Active Substance: CARBIDOPA\LEVODOPA
     Indication: Product used for unknown indication
     Dosage: UNK
     Route: 065
  19. ACETAMINOPHEN [Concomitant]
     Active Substance: ACETAMINOPHEN
     Indication: Product used for unknown indication
     Dosage: UNK
     Route: 065

REACTIONS (39)
  - Parkinson^s disease [Unknown]
  - Abdominal discomfort [Unknown]
  - Bradykinesia [Unknown]
  - Speech disorder [Unknown]
  - Apathy [Unknown]
  - Pain [Unknown]
  - Contusion [Unknown]
  - Chills [Unknown]
  - Depressed mood [Unknown]
  - Myalgia [Unknown]
  - Musculoskeletal stiffness [Unknown]
  - Neck pain [Unknown]
  - Poor quality sleep [Unknown]
  - Feeling abnormal [Unknown]
  - Reduced facial expression [Unknown]
  - Movement disorder [Unknown]
  - Housebound [Unknown]
  - Apathy [Unknown]
  - Trismus [Unknown]
  - Gait disturbance [Unknown]
  - Fatigue [Unknown]
  - Dizziness [Not Recovered/Not Resolved]
  - Dry mouth [Unknown]
  - Oropharyngeal discomfort [Recovered/Resolved]
  - Headache [Unknown]
  - Cough [Not Recovered/Not Resolved]
  - Dyskinesia [Unknown]
  - Fall [Recovered/Resolved]
  - Nausea [Unknown]
  - Initial insomnia [Unknown]
  - Pain in extremity [Unknown]
  - Decreased appetite [Unknown]
  - Product residue present [Unknown]
  - Expulsion of medication [Unknown]
  - Drug effect less than expected [Unknown]
  - Drug ineffective [Not Recovered/Not Resolved]
  - Product prescribing error [Recovered/Resolved]
  - Wrong technique in device usage process [Unknown]
  - Treatment noncompliance [Not Recovered/Not Resolved]

NARRATIVE: CASE EVENT DATE: 20240601
